FAERS Safety Report 24019984 (Version 1)
Quarter: 2024Q2

REPORT INFORMATION
  Report Type: Spontaneous
  Country: JP (occurrence: JP)
  Receive Date: 20240627
  Receipt Date: 20240627
  Transmission Date: 20240715
  Serious: Yes (Hospitalization)
  Sender: FDA-Public Use
  Company Number: JP-ELI_LILLY_AND_COMPANY-JP202406014489

PATIENT
  Age: 75 Year
  Sex: Male

DRUGS (1)
  1. RETEVMO [Suspect]
     Active Substance: SELPERCATINIB
     Indication: Non-small cell lung cancer
     Dosage: UNK
     Route: 048
     Dates: start: 202310, end: 20240610

REACTIONS (2)
  - Osteomyelitis [Recovering/Resolving]
  - Endocarditis [Recovered/Resolved]

NARRATIVE: CASE EVENT DATE: 20240610
